FAERS Safety Report 7011367-2 (Version None)
Quarter: 2010Q3

REPORT INFORMATION
  Report Type: 
  Country: None (occurrence: None)
  Receive Date: 20100922
  Receipt Date: 20100922
  Transmission Date: 20110219
  Serious: No
  Sender: FDA-Public Use
  Company Number: None

PATIENT

DRUGS (1)
  1. SPIRIVA [Suspect]
     Indication: DYSPNOEA
     Dosage: 1 PUFF EVERY DAY INHALATION
     Route: 055
     Dates: start: 20100908

REACTIONS (1)
  - DRUG INEFFECTIVE [None]
